FAERS Safety Report 8835208 (Version 4)
Quarter: 2012Q4

REPORT INFORMATION
  Report Type: Report from Study
  Country: BE (occurrence: BE)
  Receive Date: 20121011
  Receipt Date: 20121116
  Transmission Date: 20130627
  Serious: Yes (Death, Other)
  Sender: FDA-Public Use
  Company Number: BE-CELGENEUS-013-C5013-12100279

PATIENT
  Age: 77 Year
  Sex: Male
  Weight: 79.5 kg

DRUGS (11)
  1. CC-5013 [Suspect]
     Indication: MULTIPLE MYELOMA
     Dosage: 25 Milligram
     Route: 048
     Dates: start: 20101210
  2. CC-5013 [Suspect]
     Dosage: 25 Milligram
     Route: 048
     Dates: start: 20110422, end: 20110512
  3. CC-5013 [Suspect]
     Dosage: 25 Milligram
     Route: 048
     Dates: start: 20110617, end: 20120921
  4. DEXAMETHASONE [Suspect]
     Indication: MULTIPLE MYELOMA
     Dosage: 20 Milligram
     Route: 065
     Dates: start: 20101210
  5. DEXAMETHASONE [Suspect]
     Dosage: 20 Milligram
     Route: 065
     Dates: start: 20110422, end: 20110519
  6. DEXAMETHASONE [Suspect]
     Dosage: 20 Milligram
     Route: 065
     Dates: start: 20110617, end: 20120921
  7. CALCIUM CARBONATE [Concomitant]
     Indication: PROPHYLAXIS
     Dosage: 1000/800 mg/IE
     Route: 048
     Dates: start: 20110410
  8. CALCIUM CARBONATE [Concomitant]
     Indication: CALCIUM DECREASED
  9. ACETYLSALICYLIC ACID [Concomitant]
     Indication: THROMBOSIS PROPHYLAXIS
     Dosage: 80 Milligram
     Route: 048
     Dates: start: 20110617
  10. PERINDOPRIL TERT-BUTYLAMINE [Concomitant]
     Indication: HYPERTENSION
     Dosage: 5 Milligram
     Route: 048
     Dates: start: 20110715
  11. BUMETANIDE [Concomitant]
     Indication: ANKLE OEDEMA
     Dosage: 2 Milligram
     Route: 048
     Dates: start: 20110520

REACTIONS (1)
  - Lung squamous cell carcinoma stage I [Fatal]
